FAERS Safety Report 4290926-4 (Version None)
Quarter: 2004Q1

REPORT INFORMATION
  Report Type: 
  Country: None (occurrence: None)
  Receive Date: 20040211
  Receipt Date: 20031010
  Transmission Date: 20041129
  Serious: No
  Sender: FDA-Public Use
  Company Number: US-GLAXOSMITHKLINE-A0430037A

PATIENT
  Sex: Male

DRUGS (4)
  1. PAXIL [Suspect]
     Indication: DEPRESSION
  2. WELLBUTRIN SR [Concomitant]
     Indication: DEPRESSION
     Dosage: 150MG TWICE PER DAY
     Route: 048
     Dates: start: 20020101
  3. PROZAC [Concomitant]
     Indication: DEPRESSION
  4. EFFEXOR [Concomitant]

REACTIONS (2)
  - HYPERTENSION [None]
  - NAUSEA [None]
